FAERS Safety Report 4336787-6 (Version None)
Quarter: 2004Q1

REPORT INFORMATION
  Report Type: 
  Country: None (occurrence: None)
  Receive Date: 20040329
  Receipt Date: 20040109
  Transmission Date: 20041129
  Serious: Yes (Hospitalization)
  Sender: FDA-Public Use
  Company Number: USA040156251

PATIENT
  Age: 9 Year
  Sex: Male
  Weight: 50 kg

DRUGS (7)
  1. STRATTERA [Suspect]
     Indication: ATTENTION DEFICIT/HYPERACTIVITY DISORDER
     Dosage: 60 MG/DAY
     Dates: start: 20030801
  2. ZYPREXA [Suspect]
     Indication: AFFECTIVE DISORDER
     Dosage: 5 MG/IN THE MORNING
     Dates: start: 20040108
  3. ABILIFY (ARIPIRAZOLE0 [Concomitant]
  4. TRIPLEPTAL (OXCARBAZEPINE) [Concomitant]
  5. SEROQUEL (QUETIAPIEN FUMARATE) [Concomitant]
  6. LEXAPRO [Concomitant]
  7. SINGULAIR [Concomitant]

REACTIONS (7)
  - AGGRESSION [None]
  - ANGER [None]
  - CRYING [None]
  - DRUG INEFFECTIVE [None]
  - MOOD SWINGS [None]
  - TIC [None]
  - WEIGHT INCREASED [None]
